FAERS Safety Report 5376195-2 (Version None)
Quarter: 2007Q2

REPORT INFORMATION
  Report Type: 
  Country: None (occurrence: None)
  Receive Date: 20070628
  Receipt Date: 20070615
  Transmission Date: 20071010
  Serious: Yes (Hospitalization)
  Sender: FDA-Public Use
  Company Number: 157665ISR

PATIENT
  Age: 63 Year
  Sex: Female

DRUGS (3)
  1. FLUOROURACIL [Suspect]
     Indication: NEOPLASM MALIGNANT
     Dosage: 500MG/10ML INTRAVENOUS (NOT OTHERWISE SPECIFIED)
     Route: 042
     Dates: start: 20070612, end: 20070613
  2. HALOPERIDOL [Concomitant]
  3. LEVOMEPROMAZINE MALEATE [Concomitant]

REACTIONS (3)
  - ARTERIOSPASM CORONARY [None]
  - ISCHAEMIC CARDIOMYOPATHY [None]
  - MYOCARDIAL INFARCTION [None]
